FAERS Safety Report 5888646-5 (Version None)
Quarter: 2008Q3

REPORT INFORMATION
  Report Type: 
  Country: None (occurrence: None)
  Receive Date: 20080916
  Receipt Date: 20080829
  Transmission Date: 20090109
  Serious: Yes (Hospitalization, Other)
  Sender: FDA-Public Use
  Company Number: TR200809000094

PATIENT
  Age: 21 Year
  Sex: Female

DRUGS (3)
  1. PROZAC [Suspect]
     Dosage: 20 MG, DAILY (1/D)
  2. ZYPREXA [Suspect]
     Dosage: SEE IMAGE
  3. INTRON A [Concomitant]

REACTIONS (5)
  - IRRITABILITY [None]
  - MANIA [None]
  - NEUTROPHIL COUNT DECREASED [None]
  - PSYCHOTIC DISORDER [None]
  - WHITE BLOOD CELL COUNT DECREASED [None]
